FAERS Safety Report 5238411-7 (Version None)
Quarter: 2007Q1

REPORT INFORMATION
  Report Type: 
  Country: None (occurrence: None)
  Receive Date: 20070215
  Receipt Date: 20070207
  Transmission Date: 20070707
  Serious: Yes (Other)
  Sender: FDA-Public Use
  Company Number: BE-ROCHE-482091

PATIENT
  Age: 43 Year
  Sex: Female

DRUGS (2)
  1. ROACCUTANE [Suspect]
     Indication: ACNE
     Dosage: TAKEN DAILY.
     Route: 048
     Dates: start: 20061115
  2. CONTRACEPTIVE NOS [Concomitant]

REACTIONS (1)
  - PREGNANCY [None]
